FAERS Safety Report 7271294-2 (Version None)
Quarter: 2011Q1

REPORT INFORMATION
  Report Type: 
  Country: None (occurrence: None)
  Receive Date: 20110203
  Receipt Date: 20110128
  Transmission Date: 20110831
  Serious: Yes (Hospitalization)
  Sender: FDA-Public Use
  Company Number: US-BIOGENIDEC-2011BI001728

PATIENT
  Age: 71 Year
  Sex: Female
  Weight: 72 kg

DRUGS (1)
  1. AVONEX [Suspect]
     Indication: MULTIPLE SCLEROSIS
     Route: 030
     Dates: start: 20070731

REACTIONS (9)
  - WEIGHT DECREASED [None]
  - BALANCE DISORDER [None]
  - FACE INJURY [None]
  - CEREBRAL HAEMORRHAGE [None]
  - HEADACHE [None]
  - PAIN IN EXTREMITY [None]
  - BACK PAIN [None]
  - FALL [None]
  - HYDROCEPHALUS [None]
